FAERS Safety Report 14685051 (Version 4)
Quarter: 2018Q2

REPORT INFORMATION
  Report Type: Report from Study
  Country: US (occurrence: US)
  Receive Date: 20180327
  Receipt Date: 20180522
  Transmission Date: 20180711
  Serious: Yes (Other)
  Sender: FDA-Public Use
  Company Number: US-CLOVIS ONCOLOGY-CLO-2018-000229

PATIENT
  Age: 61 Year
  Sex: Female

DRUGS (2)
  1. RUBRACA [Suspect]
     Active Substance: RUCAPARIB CAMSYLATE
     Indication: OVARIAN CANCER
     Dosage: 600 MG, BID
     Route: 048
     Dates: start: 20180302, end: 2018
  2. LINZESS [Suspect]
     Active Substance: LINACLOTIDE
     Indication: PRODUCT USED FOR UNKNOWN INDICATION

REACTIONS (16)
  - Photosensitivity reaction [Recovered/Resolved]
  - Lymphadenopathy [Recovered/Resolved]
  - Erythema [Unknown]
  - Carbohydrate antigen 125 increased [Recovered/Resolved]
  - Diarrhoea [Unknown]
  - Amnesia [Not Recovered/Not Resolved]
  - Blister [Recovered/Resolved]
  - Abdominal distension [Unknown]
  - Pruritus [Recovered/Resolved]
  - Wound haemorrhage [Recovered/Resolved]
  - Platelet count decreased [Recovering/Resolving]
  - Blood pressure decreased [Unknown]
  - Burning sensation [Recovered/Resolved]
  - Dry skin [Unknown]
  - Influenza [Unknown]
  - Fatigue [Not Recovered/Not Resolved]

NARRATIVE: CASE EVENT DATE: 201803
